FAERS Safety Report 11115734 (Version 1)
Quarter: 2015Q2

REPORT INFORMATION
  Report Type: Report from Study
  Country: CA (occurrence: CA)
  Receive Date: 20150515
  Receipt Date: 20150515
  Transmission Date: 20150821
  Serious: Yes (Hospitalization, Other)
  Sender: FDA-Public Use
  Company Number: PHHY2015CA057299

PATIENT
  Sex: Female

DRUGS (1)
  1. SANDOSTATIN [Suspect]
     Active Substance: OCTREOTIDE ACETATE
     Indication: CERVIX CARCINOMA
     Dosage: 150 UG, TID
     Route: 058
     Dates: start: 20150331, end: 20150405

REACTIONS (3)
  - Diarrhoea [Unknown]
  - Malaise [Unknown]
  - Thrombocytopenia [Unknown]
